FAERS Safety Report 4981409-4 (Version None)
Quarter: 2006Q2

REPORT INFORMATION
  Report Type: 
  Country: None (occurrence: None)
  Receive Date: 20060424
  Receipt Date: 20060118
  Transmission Date: 20061013
  Serious: Yes (Death, Hospitalization)
  Sender: FDA-Public Use
  Company Number: US-MERCK-0601USA02210

PATIENT
  Age: 86 Year
  Sex: Male
  Weight: 59 kg

DRUGS (1)
  1. VIOXX [Suspect]
     Indication: ARTHRITIS
     Route: 048
     Dates: start: 20000101, end: 20040401

REACTIONS (5)
  - BLADDER CANCER [None]
  - CEREBROVASCULAR ACCIDENT [None]
  - DEATH [None]
  - DEPRESSION [None]
  - GLAUCOMA [None]
